FAERS Safety Report 6986046-8 (Version None)
Quarter: 2010Q3

REPORT INFORMATION
  Report Type: 
  Country: None (occurrence: None)
  Receive Date: 20100910
  Receipt Date: 20100826
  Transmission Date: 20110219
  Serious: Yes (Other)
  Sender: FDA-Public Use
  Company Number: D1004094

PATIENT
  Age: 52 Year
  Sex: Female

DRUGS (8)
  1. AMANTADINE HCL [Suspect]
     Indication: ASTHENIA
     Dosage: ORAL
     Route: 048
     Dates: start: 20090101, end: 20100101
  2. REBIF [Suspect]
     Indication: MULTIPLE SCLEROSIS
     Dosage: 44 MCG, 3 IN 1 WK, SUBCUTANEOUS
     Route: 058
     Dates: start: 20100127, end: 20100701
  3. GABAPENTIN [Concomitant]
  4. METFORMIN HCL [Concomitant]
  5. HYDROCHLOROTHIAZIDE [Concomitant]
  6. LOPRESSOR [Concomitant]
  7. CYMBALTA [Concomitant]
  8. AMBIEN [Concomitant]

REACTIONS (3)
  - BLINDNESS TRANSIENT [None]
  - MULTIPLE SCLEROSIS RELAPSE [None]
  - NUCLEAR MAGNETIC RESONANCE IMAGING ABNORMAL [None]
